FAERS Safety Report 20151421 (Version 1)
Quarter: 2021Q4

REPORT INFORMATION
  Report Type: Spontaneous
  Country: CN (occurrence: None)
  Receive Date: 20211206
  Receipt Date: 20211206
  Transmission Date: 20220304
  Serious: Yes (Hospitalization, Other)
  Sender: FDA-Public Use
  Company Number: CN-ROCHE-2969225

PATIENT
  Age: 67 Year
  Sex: Female
  Weight: 66 kg

DRUGS (4)
  1. MABTHERA [Suspect]
     Active Substance: RITUXIMAB
     Indication: Diffuse large B-cell lymphoma
     Route: 041
     Dates: start: 20210605, end: 20210605
  2. MEROPENEM [Concomitant]
     Active Substance: MEROPENEM
     Indication: Febrile infection
     Route: 041
     Dates: start: 20210605
  3. PALONOSETRON HYDROCHLORIDE [Concomitant]
     Active Substance: PALONOSETRON HYDROCHLORIDE
     Indication: Vomiting
     Route: 041
     Dates: start: 20210605, end: 20210605
  4. METHYLPREDNISOLONE SODIUM SUCCINATE [Concomitant]
     Active Substance: METHYLPREDNISOLONE SODIUM SUCCINATE
     Indication: Product used for unknown indication
     Route: 040
     Dates: start: 20210605

REACTIONS (3)
  - Temperature intolerance [Recovered/Resolved]
  - Chills [Recovering/Resolving]
  - Hypertension [Recovering/Resolving]

NARRATIVE: CASE EVENT DATE: 20210605
